FAERS Safety Report 20853983 (Version 3)
Quarter: 2022Q2

REPORT INFORMATION
  Report Type: Other
  Country: CA (occurrence: None)
  Receive Date: 20220520
  Receipt Date: 20220609
  Transmission Date: 20220721
  Serious: No
  Sender: FDA-Public Use
  Company Number: CA-ROCHE-3098336

PATIENT
  Age: 47 Year
  Sex: Male

DRUGS (6)
  1. OCREVUS [Suspect]
     Active Substance: OCRELIZUMAB
     Indication: Relapsing-remitting multiple sclerosis
     Dosage: 300 MG AT DAY 0 AND 14, THEN 600 MG EVERY 6 MONTH
     Route: 042
     Dates: start: 20201027
  2. NASACORT [Concomitant]
     Active Substance: TRIAMCINOLONE ACETONIDE
  3. BILASTINE [Concomitant]
     Active Substance: BILASTINE
  4. CETIRIZINE HYDROCHLORIDE [Concomitant]
     Active Substance: CETIRIZINE HYDROCHLORIDE
  5. VENTOLIN [Concomitant]
     Active Substance: ALBUTEROL SULFATE
  6. FLOVENT [Concomitant]
     Active Substance: FLUTICASONE PROPIONATE

REACTIONS (1)
  - COVID-19 [Recovered/Resolved]

NARRATIVE: CASE EVENT DATE: 20220429
